FAERS Safety Report 14203646 (Version 2)
Quarter: 2018Q4

REPORT INFORMATION
  Report Type: Spontaneous
  Country: US (occurrence: US)
  Receive Date: 20171120
  Receipt Date: 20181217
  Transmission Date: 20190204
  Serious: No
  Sender: FDA-Public Use
  Company Number: US-PFIZER INC-2017490743

PATIENT
  Sex: Male

DRUGS (1)
  1. GENOTROPIN MQ [Suspect]
     Active Substance: SOMATROPIN
     Dosage: 0.4 MG, DAILY
     Dates: start: 20060615

REACTIONS (7)
  - Pain in extremity [Unknown]
  - Arthritis [Unknown]
  - High density lipoprotein decreased [Unknown]
  - Glycosylated haemoglobin increased [Unknown]
  - Platelet count decreased [Unknown]
  - Insulin-like growth factor increased [Unknown]
  - Haematocrit increased [Unknown]
